FAERS Safety Report 11789084 (Version 1)
Quarter: 2015Q4

REPORT INFORMATION
  Report Type: Spontaneous
  Country: US (occurrence: None)
  Receive Date: 20151130
  Receipt Date: 20151130
  Transmission Date: 20160305
  Serious: Yes (Hospitalization)
  Sender: FDA-Public Use
  Company Number: None

PATIENT
  Age: 59 Year
  Sex: Female
  Weight: 72.58 kg

DRUGS (8)
  1. BRILINTA [Suspect]
     Active Substance: TICAGRELOR
     Indication: STENT PLACEMENT
     Dosage: 1 TABLET  TWICE DAILY  TAKEN BY MOUTH
     Route: 048
     Dates: start: 20151104, end: 20151111
  2. ASPIRIN 81 MG [Concomitant]
     Active Substance: ASPIRIN
  3. LEVOTHYROXIN [Concomitant]
     Active Substance: LEVOTHYROXINE
  4. METOPROLOL [Concomitant]
     Active Substance: METOPROLOL
  5. POTASSIUM [Concomitant]
     Active Substance: POTASSIUM
  6. BRILINTA [Suspect]
     Active Substance: TICAGRELOR
     Indication: MYOCARDIAL INFARCTION
     Dosage: 1 TABLET  TWICE DAILY  TAKEN BY MOUTH
     Route: 048
     Dates: start: 20151104, end: 20151111
  7. PANTOPRAZOLE [Concomitant]
     Active Substance: PANTOPRAZOLE SODIUM
  8. LISINOPRIL. [Concomitant]
     Active Substance: LISINOPRIL

REACTIONS (5)
  - Blood pressure increased [None]
  - Heart rate increased [None]
  - Dyspnoea [None]
  - Dizziness [None]
  - Blood pressure fluctuation [None]

NARRATIVE: CASE EVENT DATE: 20151111
